FAERS Safety Report 6291321-9 (Version None)
Quarter: 2009Q3

REPORT INFORMATION
  Report Type: 
  Country: None (occurrence: None)
  Receive Date: 20090728
  Receipt Date: 20081201
  Transmission Date: 20100115
  Serious: Yes (Death)
  Sender: FDA-Public Use
  Company Number: 271141

PATIENT
  Age: 57 Year
  Sex: Male
  Weight: 83 kg

DRUGS (4)
  1. TENECTEPLASE (TENECTEPLASE) POWDER AND SOLVENT FOR [Suspect]
     Indication: ELECTROCARDIOGRAM ST SEGMENT ELEVATION
     Dosage: 40 MG, IV BOLUS
     Route: 040
     Dates: start: 20081004
  2. HEPARIN [Concomitant]
  3. ASPIRIN [Concomitant]
  4. INTEGRILIN [Concomitant]

REACTIONS (1)
  - HAEMORRHAGIC STROKE [None]
